FAERS Safety Report 8775352 (Version 2)
Quarter: 2012Q4

REPORT INFORMATION
  Report Type: 
  Country: US (occurrence: US)
  Receive Date: 20120907
  Receipt Date: 20121002
  Transmission Date: 20130627
  Serious: Yes (Other)
  Sender: FDA-Public Use
  Company Number: US-ASTELLAS-2011US005576

PATIENT
  Age: 57 None
  Sex: Female

DRUGS (13)
  1. VESICARE [Suspect]
     Indication: MICTURITION URGENCY
     Dosage: 10 mg, UID/QD
     Route: 048
     Dates: start: 20110817, end: 20110819
  2. VESICARE [Suspect]
     Indication: STRESS URINARY INCONTINENCE
     Dosage: 5 mg, UID/QD
     Route: 048
     Dates: start: 20110820
  3. VESICARE [Suspect]
     Indication: POLLAKIURIA
     Dosage: 2.5 mg, UID/QD
     Route: 048
  4. VESICARE [Suspect]
     Dosage: 5 mg, UID/QD
     Route: 048
  5. VESICARE [Suspect]
     Dosage: 10 mg, Unknown/D
     Route: 048
  6. METOPROLOL [Concomitant]
     Indication: PRODUCT USED FOR UNKNOWN INDICATION
     Dosage: UNK
     Route: 065
  7. SYNTHROID [Concomitant]
     Indication: PRODUCT USED FOR UNKNOWN INDICATION
     Dosage: UNK
     Route: 065
  8. PAXIL [Concomitant]
     Indication: PRODUCT USED FOR UNKNOWN INDICATION
     Dosage: UNK
     Route: 065
  9. ANTIHISTAMINES [Concomitant]
     Indication: PRODUCT USED FOR UNKNOWN INDICATION
     Dosage: UNK
     Route: 065
  10. BABY ASPIRIN [Concomitant]
     Indication: PRODUCT USED FOR UNKNOWN INDICATION
     Dosage: UNK
     Route: 065
  11. CALCIUM WITH VITAMIN D [Concomitant]
     Indication: PRODUCT USED FOR UNKNOWN INDICATION
     Dosage: UNK
     Route: 065
  12. MULTIVITAMIN [Concomitant]
     Indication: PRODUCT USED FOR UNKNOWN INDICATION
     Dosage: UNK
     Route: 065
  13. LOVAZA [Concomitant]
     Indication: PRODUCT USED FOR UNKNOWN INDICATION
     Dosage: UNK
     Route: 065

REACTIONS (8)
  - Drug ineffective [Unknown]
  - Wrong technique in drug usage process [Unknown]
  - Incorrect storage of drug [Unknown]
  - Road traffic accident [Recovered/Resolved]
  - Fall [Recovered/Resolved]
  - Dehydration [Recovered/Resolved]
  - Fall [Recovered/Resolved]
  - Dry mouth [Recovering/Resolving]
